FAERS Safety Report 7786026-9 (Version None)
Quarter: 2011Q3

REPORT INFORMATION
  Report Type: 
  Country: None (occurrence: None)
  Receive Date: 20110929
  Receipt Date: 20110926
  Transmission Date: 20111222
  Serious: Yes (Death)
  Sender: FDA-Public Use
  Company Number: US-CELGENEUS-163-21880-11093053

PATIENT
  Sex: Male

DRUGS (12)
  1. IMODIUM MULTI-SYMPTOM RELIEF [Concomitant]
     Dosage: 2 MILLIGRAM
     Route: 065
  2. REVLIMID [Suspect]
     Dosage: 25 MILLIGRAM
     Route: 048
     Dates: start: 20110301
  3. LISINOPRIL [Concomitant]
     Dosage: 2.5 MILLIGRAM
     Route: 065
  4. PANTOPRAZOLE [Concomitant]
     Dosage: 20 MILLIGRAM
     Route: 065
  5. REVLIMID [Suspect]
     Indication: MULTIPLE MYELOMA
     Dosage: 25 MILLIGRAM
     Route: 048
     Dates: start: 20071218
  6. DEXAMETHASONE [Concomitant]
     Dosage: .25 MILLIGRAM
     Route: 065
  7. ASPIRIN [Concomitant]
     Dosage: 81 MILLIGRAM
     Route: 065
  8. METOPROLOL TARTRATE [Concomitant]
     Dosage: 25 MILLIGRAM
     Route: 065
  9. REVLIMID [Suspect]
     Dosage: 10 MILLIGRAM
     Route: 048
     Dates: start: 20100601
  10. PROCHLORPERAZINE [Concomitant]
     Dosage: 10 MILLIGRAM
     Route: 065
  11. OXYCODONE HCL [Concomitant]
     Dosage: 25 MILLIGRAM
     Route: 065
  12. CALCIUM CARBONATE [Concomitant]
     Route: 065

REACTIONS (1)
  - DEATH [None]
